FAERS Safety Report 8695707 (Version 2)
Quarter: 2013Q4

REPORT INFORMATION
  Report Type: Spontaneous
  Country: US (occurrence: US)
  Receive Date: 20120731
  Receipt Date: 20131106
  Transmission Date: 20140711
  Serious: Yes (Other)
  Sender: FDA-Public Use
  Company Number: US-009507513-1207USA010513

PATIENT
  Sex: Female

DRUGS (3)
  1. ZOCOR [Suspect]
     Route: 048
  2. TREDAPTIVE [Suspect]
     Dosage: UNK
     Route: 048
  3. FLUVASTATIN SODIUM [Suspect]
     Dosage: UNK
     Route: 048

REACTIONS (3)
  - Abdominal discomfort [Unknown]
  - Myopathy [Unknown]
  - Skin burning sensation [Unknown]
